FAERS Safety Report 7218850-5 (Version None)
Quarter: 2011Q1

REPORT INFORMATION
  Report Type: 
  Country: None (occurrence: None)
  Receive Date: 20110110
  Receipt Date: 20101231
  Transmission Date: 20110831
  Serious: No
  Sender: FDA-Public Use
  Company Number: US-PFIZER INC-2011001494

PATIENT
  Age: 22 Year
  Sex: Male
  Weight: 65.76 kg

DRUGS (3)
  1. ADVIL CONGESTION RELIEF [Suspect]
     Indication: RHINORRHOEA
     Dosage: 1 DF, EVERY 4 HRS (TWO TABS IN TOTAL)
     Route: 048
     Dates: start: 20101230, end: 20101230
  2. ADVIL CONGESTION RELIEF [Suspect]
     Indication: SINUS HEADACHE
  3. ADVIL CONGESTION RELIEF [Suspect]
     Indication: NASAL CONGESTION

REACTIONS (1)
  - SWELLING FACE [None]
